FAERS Safety Report 7005290-7 (Version None)
Quarter: 2010Q3

REPORT INFORMATION
  Report Type: 
  Country: None (occurrence: None)
  Receive Date: 20100920
  Receipt Date: 20100920
  Transmission Date: 20110219
  Serious: Yes (Death)
  Sender: FDA-Public Use
  Company Number: None

PATIENT
  Age: 55 Year
  Sex: Male

DRUGS (12)
  1. DASATINIB [Suspect]
     Indication: PROSTATE CANCER
     Dosage: 100 MG PO
     Route: 048
     Dates: start: 20091221, end: 20100120
  2. OXYCODONE [Concomitant]
  3. IBUPROFEN [Concomitant]
  4. MORPHINE [Concomitant]
  5. ALPRAZOLAM [Concomitant]
  6. DILAUDID [Concomitant]
  7. LASIX [Concomitant]
  8. LIPITOR [Concomitant]
  9. GABAPENTIN [Concomitant]
  10. METOPROLOL TARTRATE [Concomitant]
  11. ENALAPRIL [Concomitant]
  12. LACTULOSE [Concomitant]

REACTIONS (1)
  - HAEMOGLOBIN DECREASED [None]
